FAERS Safety Report 13056089 (Version 1)
Quarter: 2016Q4

REPORT INFORMATION
  Report Type: Spontaneous
  Country: US (occurrence: US)
  Receive Date: 20161222
  Receipt Date: 20161222
  Transmission Date: 20170207
  Serious: No
  Sender: FDA-Public Use
  Company Number: US-PURDUE-USA-2016-0128496

PATIENT
  Age: 49 Year
  Sex: Male

DRUGS (1)
  1. HYDROMORPHONE HCL (SIMILAR TO 19-892) [Suspect]
     Active Substance: HYDROMORPHONE HYDROCHLORIDE
     Indication: PROCEDURAL PAIN
     Dosage: 4 MG, Q4H
     Route: 048
     Dates: start: 20160115, end: 20160119

REACTIONS (3)
  - Drug effect decreased [Recovered/Resolved]
  - Inadequate analgesia [Recovered/Resolved]
  - Depression [Recovered/Resolved]

NARRATIVE: CASE EVENT DATE: 20160115
